FAERS Safety Report 7907998-5 (Version None)
Quarter: 2011Q4

REPORT INFORMATION
  Report Type: 
  Country: None (occurrence: None)
  Receive Date: 20111110
  Receipt Date: 20111102
  Transmission Date: 20120403
  Serious: Yes (Hospitalization, Other)
  Sender: FDA-Public Use
  Company Number: US-ASTRAZENECA-2011SE66465

PATIENT
  Age: 75 Year
  Sex: Female
  Weight: 81.6 kg

DRUGS (7)
  1. INSULIN [Concomitant]
     Indication: DIABETES MELLITUS
     Dosage: 2 SHOTS
  2. PLAVIX [Concomitant]
  3. SYNTHROID [Concomitant]
     Indication: THYROID DISORDER
  4. EFFEXOR [Concomitant]
     Indication: DEPRESSION
  5. LORAZEPAM [Concomitant]
  6. NEXIUM [Suspect]
     Indication: GASTROOESOPHAGEAL REFLUX DISEASE
     Route: 048
     Dates: start: 19910101
  7. FUROSEMIDE [Concomitant]
     Indication: DIURETIC THERAPY

REACTIONS (5)
  - CARDIAC FAILURE CONGESTIVE [None]
  - INCORRECT DRUG ADMINISTRATION DURATION [None]
  - CORONARY ARTERY INSUFFICIENCY [None]
  - CORONARY ARTERY OCCLUSION [None]
  - INAPPROPRIATE SCHEDULE OF DRUG ADMINISTRATION [None]
